FAERS Safety Report 10953979 (Version 1)
Quarter: 2015Q1

REPORT INFORMATION
  Report Type: Spontaneous
  Country: US (occurrence: None)
  Receive Date: 20150226
  Receipt Date: 20150226
  Transmission Date: 20150721
  Serious: Yes (Hospitalization)
  Sender: FDA-Public Use
  Company Number: TAP2008Q00087

PATIENT
  Age: 38 Year
  Sex: Female
  Weight: 63.5 kg

DRUGS (3)
  1. PREVACID [Suspect]
     Active Substance: LANSOPRAZOLE
     Indication: OESOPHAGEAL DISORDER
     Dosage: 1 IN 1 D
     Route: 048
     Dates: start: 200711, end: 200712
  2. PREVACID [Suspect]
     Active Substance: LANSOPRAZOLE
     Indication: GASTROOESOPHAGEAL REFLUX DISEASE
     Dosage: 1 IN 1 D
     Route: 048
     Dates: start: 200711, end: 200712
  3. ZANTAC [Concomitant]
     Active Substance: RANITIDINE HYDROCHLORIDE

REACTIONS (1)
  - Anaphylactic reaction [None]

NARRATIVE: CASE EVENT DATE: 200712
